FAERS Safety Report 24020931 (Version 7)
Quarter: 2024Q3

REPORT INFORMATION
  Report Type: Report from Study
  Country: CN (occurrence: CN)
  Receive Date: 20240627
  Receipt Date: 20240829
  Transmission Date: 20241016
  Serious: No
  Sender: DAIICHI
  Company Number: CN-DSJP-DSJ-2024-120349

PATIENT
  Sex: Female
  Weight: 156 kg

DRUGS (23)
  1. ENHERTU [Suspect]
     Active Substance: FAM-TRASTUZUMAB DERUXTECAN-NXKI
     Indication: Breast cancer
     Dosage: 5.4 MG/KG, ONCE EVERY 3 WK
     Route: 042
     Dates: start: 20240429, end: 20240429
  2. BICYCLOL [Concomitant]
     Active Substance: BICYCLOL
     Indication: Prophylaxis
     Dosage: 25 MG, TID
     Route: 048
     Dates: start: 20240410, end: 20240425
  3. HERBALS\DIAMMONIUM GLYCYRRHIZINATE [Concomitant]
     Active Substance: HERBALS\DIAMMONIUM GLYCYRRHIZINATE
     Indication: Prophylaxis
     Dosage: 150 MG, TID
     Route: 048
     Dates: start: 20240410, end: 20240503
  4. HERBALS [Concomitant]
     Active Substance: HERBALS
     Indication: Chronic kidney disease
     Dosage: 5 G, QID
     Route: 048
     Dates: start: 20240410
  5. JIN SHUI BAO [Concomitant]
     Indication: Chronic kidney disease
     Dosage: 4 G, TID
     Route: 048
     Dates: start: 20240410
  6. SHENG XUE NING [Concomitant]
     Indication: Chronic kidney disease
     Dosage: 0.5 G, TID
     Route: 048
     Dates: start: 20240407, end: 20240507
  7. SACUBITRIL\VALSARTAN [Concomitant]
     Active Substance: SACUBITRIL\VALSARTAN
     Indication: Hypertension
     Dosage: 200 MG, QD
     Route: 048
     Dates: start: 20240430
  8. HEMOCOAGULASE [Concomitant]
     Indication: Haemostasis
     Dosage: 2 UNIT, SINGLE
     Route: 058
     Dates: start: 20240416, end: 20240416
  9. HEMOCOAGULASE [Concomitant]
     Indication: Prophylaxis
  10. TRANEXAMIC ACID [Concomitant]
     Active Substance: TRANEXAMIC ACID
     Indication: Prophylaxis
     Dosage: 0.5 G, SINGLE
     Route: 042
     Dates: start: 20240416, end: 20240416
  11. TRANEXAMIC ACID [Concomitant]
     Active Substance: TRANEXAMIC ACID
     Indication: Haemostasis
  12. GRANULOCYTE COLONY-STIMULATING FACTOR NOS [Concomitant]
     Active Substance: GRANULOCYTE COLONY-STIMULATING FACTOR NOS
     Indication: White blood cell count decreased
     Dosage: 75 UG, SINGLE
     Route: 058
     Dates: start: 20240425, end: 20240425
  13. NETUPITANT\PALONOSETRON [Concomitant]
     Active Substance: NETUPITANT\PALONOSETRON
     Indication: Prophylaxis
     Dosage: 0.3 G, SINGLE
     Route: 048
     Dates: start: 20240428, end: 20240428
  14. NETUPITANT\PALONOSETRON [Concomitant]
     Active Substance: NETUPITANT\PALONOSETRON
     Indication: Vomiting
  15. PEGYLATED RECOMBINANT HUMAN GRANULOCYTE COLONY STIMULATING FACTOR [Concomitant]
     Indication: White blood cell count decreased
     Dosage: 3 MG, SINGLE
     Route: 058
     Dates: start: 20240430, end: 20240430
  16. DENOSUMAB [Concomitant]
     Active Substance: DENOSUMAB
     Indication: Prophylaxis
     Dosage: 120 MG, SINGLE
     Route: 058
     Dates: start: 20240428, end: 20240428
  17. VITAMIN C [Concomitant]
     Active Substance: ASCORBIC ACID
     Indication: Prophylaxis
     Dosage: 3.0 G, SINGLE
     Route: 042
     Dates: start: 20240429, end: 20240429
  18. VITAMIN C [Concomitant]
     Active Substance: ASCORBIC ACID
     Indication: Fluid replacement
  19. VITAMIN B6 [Concomitant]
     Active Substance: PYRIDOXINE HYDROCHLORIDE
     Indication: Fluid replacement
     Dosage: 200 MG, SINGLE
     Route: 042
     Dates: start: 20240429, end: 20240429
  20. VITAMIN B6 [Concomitant]
     Active Substance: PYRIDOXINE HYDROCHLORIDE
     Indication: Prophylaxis
  21. OMEPRAZOLE SODIUM [Concomitant]
     Active Substance: OMEPRAZOLE SODIUM
     Indication: Prophylaxis
     Dosage: 40 MG, SINGLE
     Route: 042
     Dates: start: 20240429, end: 20240429
  22. CALCIUM GLUCONATE [Concomitant]
     Active Substance: CALCIUM GLUCONATE
     Indication: Prophylaxis
     Dosage: 3 G, QD
     Route: 042
     Dates: start: 20240503, end: 20240504
  23. CALCIUM GLUCONATE [Concomitant]
     Active Substance: CALCIUM GLUCONATE
     Indication: Mineral supplementation

REACTIONS (1)
  - Hepatic failure [Not Recovered/Not Resolved]

NARRATIVE: CASE EVENT DATE: 20240503
